FAERS Safety Report 26059215 (Version 1)
Quarter: 2025Q4

REPORT INFORMATION
  Report Type: Spontaneous
  Country: RS (occurrence: RS)
  Receive Date: 20251118
  Receipt Date: 20251118
  Transmission Date: 20260117
  Serious: Yes (Other)
  Sender: MERCK SHARP & DOHME LLC
  Company Number: RS-009507513-2350028

PATIENT
  Age: 26 Year
  Sex: Male

DRUGS (7)
  1. CILASTATIN\IMIPENEM\RELEBACTAM [Suspect]
     Active Substance: CILASTATIN\IMIPENEM\RELEBACTAM
     Indication: Pneumonia klebsiella
     Dates: start: 202505
  2. ERTAPENEM [Suspect]
     Active Substance: ERTAPENEM
     Indication: Pneumonia klebsiella
  3. COLISTIN [Suspect]
     Active Substance: COLISTIN
     Indication: Pneumonia klebsiella
  4. AMPHOTERICIN B [Suspect]
     Active Substance: AMPHOTERICIN B
     Indication: Pneumonia klebsiella
  5. AVIBACTAM SODIUM\CEFTAZIDIME [Suspect]
     Active Substance: AVIBACTAM SODIUM\CEFTAZIDIME
     Indication: Sepsis
  6. VANCOMYCIN [Suspect]
     Active Substance: VANCOMYCIN
     Indication: Infection
     Dates: start: 202510
  7. DIFLUCAN [Suspect]
     Active Substance: FLUCONAZOLE
     Indication: Infection
     Dates: start: 202510

REACTIONS (7)
  - Pneumonia klebsiella [Recovered/Resolved]
  - Sepsis [Recovered/Resolved]
  - Pneumonia [Recovered/Resolved]
  - Infection [Unknown]
  - Electroencephalogram abnormal [Unknown]
  - Abscess [Unknown]
  - Encephalopathy [Unknown]

NARRATIVE: CASE EVENT DATE: 20250901
